FAERS Safety Report 10973494 (Version 1)
Quarter: 2015Q2

REPORT INFORMATION
  Report Type: Spontaneous
  Country: US (occurrence: US)
  Receive Date: 20150401
  Receipt Date: 20150401
  Transmission Date: 20150821
  Serious: No
  Sender: FDA-Public Use
  Company Number: US-BIOGENIDEC-2015BI018295

PATIENT
  Sex: Female

DRUGS (1)
  1. TYSABRI [Suspect]
     Active Substance: NATALIZUMAB
     Indication: MULTIPLE SCLEROSIS
     Route: 042
     Dates: start: 20140819

REACTIONS (7)
  - Musculoskeletal disorder [Unknown]
  - Pain in extremity [Unknown]
  - Insomnia [Unknown]
  - Vein disorder [Unknown]
  - Mobility decreased [Unknown]
  - Weight decreased [Unknown]
  - Pain [Unknown]
